FAERS Safety Report 9633402 (Version 1)
Quarter: 2013Q4

REPORT INFORMATION
  Report Type: Spontaneous
  Country: US (occurrence: US)
  Receive Date: 20131021
  Receipt Date: 20131021
  Transmission Date: 20140711
  Serious: No
  Sender: FDA-Public Use
  Company Number: US-BRISTOL-MYERS SQUIBB COMPANY-19224385

PATIENT
  Age: 63 Year
  Sex: Male

DRUGS (4)
  1. YERVOY [Suspect]
     Indication: MALIGNANT MELANOMA
     Dosage: 1DF:354MG AND 357MG
     Route: 042
     Dates: start: 20130719, end: 20130808
  2. LOPRESSOR [Concomitant]
  3. ASPIRIN [Concomitant]
  4. COUMADIN [Concomitant]
     Dosage: 1DF: 10MG (M,W,F,S), COUMADIN 7.5MG ON?(T,TH AND SAT).

REACTIONS (1)
  - Rash pruritic [Unknown]
